FAERS Safety Report 5292892-1 (Version None)
Quarter: 2007Q1

REPORT INFORMATION
  Report Type: 
  Country: None (occurrence: None)
  Receive Date: 20070116
  Receipt Date: 20060112
  Transmission Date: 20070707
  Serious: Yes (Other)
  Sender: FDA-Public Use
  Company Number: HQWYE609005MAR04

PATIENT
  Age: 54 Year
  Sex: Female

DRUGS (2)
  1. PREMPRO [Suspect]
     Indication: HORMONE REPLACEMENT THERAPY
     Dosage: UNK, ORAL
     Route: 048
     Dates: start: 19950101, end: 20021101
  2. PREMARIN [Suspect]

REACTIONS (1)
  - BREAST CANCER FEMALE [None]
